FAERS Safety Report 7880309-X (Version None)
Quarter: 2011Q4

REPORT INFORMATION
  Report Type: 
  Country: None (occurrence: None)
  Receive Date: 20111101
  Receipt Date: 20111025
  Transmission Date: 20120403
  Serious: Yes (Hospitalization)
  Sender: FDA-Public Use
  Company Number: US-PFIZER INC-2011261870

PATIENT
  Age: 82 Year
  Sex: Male

DRUGS (2)
  1. THEOPHYLLINE [Suspect]
     Indication: RESPIRATORY FAILURE
  2. CIPROFLOXACIN [Interacting]
     Indication: PNEUMONIA

REACTIONS (3)
  - DRUG INTERACTION [None]
  - TREMOR [None]
  - DIZZINESS [None]
